FAERS Safety Report 17141986 (Version 1)
Quarter: 2019Q4

REPORT INFORMATION
  Report Type: Spontaneous
  Country: IT (occurrence: IT)
  Receive Date: 20191211
  Receipt Date: 20191211
  Transmission Date: 20200122
  Serious: Yes (Other)
  Sender: FDA-Public Use
  Company Number: IT-ELI_LILLY_AND_COMPANY-IT201912002504

PATIENT
  Age: 69 Year
  Sex: Female
  Weight: 64 kg

DRUGS (5)
  1. GEMCITABINE HYDROCHLORIDE. [Suspect]
     Active Substance: GEMCITABINE HYDROCHLORIDE
     Indication: PANCREATIC CARCINOMA METASTATIC
     Dosage: 1670 MG, CYCLICAL
     Route: 041
     Dates: start: 20181023, end: 20181023
  2. ABRAXANE [Suspect]
     Active Substance: PACLITAXEL
     Indication: PANCREATIC CARCINOMA METASTATIC
     Dosage: 167 MG, CYCLICAL
     Route: 041
     Dates: start: 20181023, end: 20181023
  3. OMEPRAZEN [OMEPRAZOLE SODIUM] [Concomitant]
     Indication: HYPERCHLORHYDRIA
     Dosage: 40 MG, CYCLICAL
     Route: 042
     Dates: start: 20181023, end: 20181023
  4. TRIMETON [Concomitant]
     Active Substance: CHLORPHENIRAMINE MALEATE
     Indication: HYPERSENSITIVITY
     Dosage: 10 MG, CYCLICAL
     Route: 042
     Dates: start: 20181023, end: 20181023
  5. MEGACORT [DEXAMETHASONE SODIUM PHOSPHATE] [Concomitant]
     Indication: HYPERSENSITIVITY
     Dosage: 4 MG, CYCLICAL
     Route: 042
     Dates: start: 20181023, end: 20181023

REACTIONS (5)
  - Malaise [Recovered/Resolved]
  - Diarrhoea [Recovered/Resolved]
  - Presyncope [Recovered/Resolved]
  - Asthenia [Recovered/Resolved]
  - Off label use [Unknown]

NARRATIVE: CASE EVENT DATE: 20181025
